FAERS Safety Report 23914211 (Version 1)
Quarter: 2024Q2

REPORT INFORMATION
  Report Type: Report from Study
  Country: US (occurrence: US)
  Receive Date: 20240529
  Receipt Date: 20240529
  Transmission Date: 20240716
  Serious: Yes (Hospitalization, Other)
  Sender: FDA-Public Use
  Company Number: US-GILEAD-2024-0674322

PATIENT
  Age: 32 Year
  Sex: Male

DRUGS (3)
  1. SOFOSBUVIR\VELPATASVIR [Suspect]
     Active Substance: SOFOSBUVIR\VELPATASVIR
     Indication: Hepatitis C
     Dosage: 1 DOSAGE FORM, QD (12 WEEKS )
     Route: 065
     Dates: start: 20240502
  2. RIBAVIRIN [Concomitant]
     Active Substance: RIBAVIRIN
     Dosage: UNKNOWN
  3. BENZOCAINE\CHLORHEXIDINE HYDROCHLORIDE [Concomitant]
     Active Substance: BENZOCAINE\CHLORHEXIDINE HYDROCHLORIDE
     Indication: Anxiety
     Dosage: UNKNOWN

REACTIONS (7)
  - Pharyngeal abscess [Unknown]
  - Unevaluable event [Unknown]
  - Abdominal discomfort [Not Recovered/Not Resolved]
  - Fatigue [Not Recovered/Not Resolved]
  - Hyperhidrosis [Not Recovered/Not Resolved]
  - Headache [Not Recovered/Not Resolved]
  - Insomnia [Not Recovered/Not Resolved]

NARRATIVE: CASE EVENT DATE: 20240501
